FAERS Safety Report 16665056 (Version 1)
Quarter: 2019Q3

REPORT INFORMATION
  Report Type: Spontaneous
  Country: US (occurrence: US)
  Receive Date: 20190803
  Receipt Date: 20190803
  Transmission Date: 20191004
  Serious: Yes (Other)
  Sender: FDA-Public Use
  Company Number: US-ACCORD-071268

PATIENT
  Age: 61 Year
  Sex: Female
  Weight: 81.65 kg

DRUGS (12)
  1. DOCETAXEL ACCORD [Suspect]
     Active Substance: DOCETAXEL
     Indication: INVASIVE DUCTAL BREAST CARCINOMA
     Dosage: NUMBER OF CYCLES: 04
     Dates: start: 20160303, end: 20160505
  2. LISINOPRIL/LISINOPRIL DIHYDRATE [Concomitant]
     Dates: start: 201301
  3. NIFEDIPINE. [Concomitant]
     Active Substance: NIFEDIPINE
  4. CYTOXAN [Suspect]
     Active Substance: CYCLOPHOSPHAMIDE
     Indication: INVASIVE DUCTAL BREAST CARCINOMA
     Dosage: NUMBER OF CYCLES: 04
     Dates: start: 20160303, end: 20160505
  5. LASIX [Concomitant]
     Active Substance: FUROSEMIDE
     Dates: start: 201301
  6. PRILOSEC [Concomitant]
     Active Substance: OMEPRAZOLE MAGNESIUM
     Dates: start: 201301
  7. TACLONEX [Concomitant]
     Active Substance: BETAMETHASONE DIPROPIONATE\CALCIPOTRIENE\CALCIPOTRIENE HYDRATE
     Dates: start: 201301
  8. COMPAZINE [Concomitant]
     Active Substance: PROCHLORPERAZINE MALEATE
     Dates: start: 201301
  9. NEULASTA [Concomitant]
     Active Substance: PEGFILGRASTIM
  10. LEVETIRACETAM. [Concomitant]
     Active Substance: LEVETIRACETAM
     Dates: start: 201301
  11. OMEPRAZOLE. [Concomitant]
     Active Substance: OMEPRAZOLE
     Dates: start: 201301
  12. JUBLIA [Concomitant]
     Active Substance: EFINACONAZOLE
     Dates: start: 201301

REACTIONS (1)
  - Alopecia [Not Recovered/Not Resolved]

NARRATIVE: CASE EVENT DATE: 20161105
